FAERS Safety Report 23429256 (Version 1)
Quarter: 2024Q1

REPORT INFORMATION
  Report Type: Spontaneous
  Country: US (occurrence: US)
  Receive Date: 20240122
  Receipt Date: 20240122
  Transmission Date: 20240410
  Serious: No
  Sender: FDA-Public Use
  Company Number: US-SA-SAC20240118001381

PATIENT
  Age: 39 Year
  Sex: Male

DRUGS (1)
  1. DUPIXENT [Suspect]
     Active Substance: DUPILUMAB
     Indication: Asthma
     Dosage: DOSE: 300MG FREQUENCY: EVERY OTHER WEEK
     Route: 058
     Dates: start: 20231006

REACTIONS (2)
  - Dyspnoea [Unknown]
  - Drug ineffective [Unknown]
